FAERS Safety Report 8383618 (Version 2)
Quarter: 2013Q2

REPORT INFORMATION
  Report Type: Spontaneous
  Country: US (occurrence: None)
  Receive Date: 20111221
  Receipt Date: 20121227
  Transmission Date: 20140414
  Serious: Yes (Hospitalization)
  Sender: FDA-Public Use
  Company Number: PHEH2011US07933

PATIENT
  Age: 27 Year
  Sex: Female
  Weight: 58.5 kg

DRUGS (4)
  1. EXJADE [Suspect]
     Indication: SICKLE CELL ANAEMIA
     Route: 048
     Dates: start: 20110427
  2. OXYCONTIN (OXYCODONE HYDROCHLORIDE) [Concomitant]
  3. FOLATE (FOLATE SODIUM) [Concomitant]
  4. DILAUDID (HYDROMORPHONE HYDROCHLORIDE) [Concomitant]

REACTIONS (1)
  - SICKLE CELL ANAEMIA WITH CRISIS [None]
